FAERS Safety Report 11245856 (Version 1)
Quarter: 2015Q3

REPORT INFORMATION
  Report Type: Spontaneous
  Country: IT (occurrence: IT)
  Receive Date: 20150707
  Receipt Date: 20150707
  Transmission Date: 20151125
  Serious: Yes (Death, Other)
  Sender: FDA-Public Use
  Company Number: IT-HOSPIRA-2922950

PATIENT
  Age: 39 Year
  Sex: Male

DRUGS (4)
  1. IRINOTECAN HYDROCHLORIDE. [Suspect]
     Active Substance: IRINOTECAN HYDROCHLORIDE
     Indication: EWING^S SARCOMA RECURRENT
     Dosage: AT DAY 4
     Route: 041
  2. TRABECTEDIN [Suspect]
     Active Substance: TRABECTEDIN
     Indication: EWING^S SARCOMA RECURRENT
     Dosage: AT DAY 1, EVERY 28 DAYS FOR SIX COURSES
     Route: 041
  3. IRINOTECAN HYDROCHLORIDE. [Suspect]
     Active Substance: IRINOTECAN HYDROCHLORIDE
     Indication: EWING^S SARCOMA RECURRENT
     Dosage: AT DAY 2, EVERY 28 DAYS FOR SIX COURSES
     Route: 041
  4. DEXAMETHASONE. [Concomitant]
     Active Substance: DEXAMETHASONE
     Indication: PRODUCT USED FOR UNKNOWN INDICATION
     Dosage: 30 MINUTES BEFORE TRABECTEDIN INFUSION

REACTIONS (6)
  - Cerebrovascular accident [Fatal]
  - Hepatotoxicity [Recovered/Resolved]
  - Off label use [Fatal]
  - Diarrhoea [Recovered/Resolved]
  - Transaminases increased [Unknown]
  - Haematotoxicity [Recovered/Resolved]
